FAERS Safety Report 6329048-7 (Version None)
Quarter: 2009Q3

REPORT INFORMATION
  Report Type: 
  Country: None (occurrence: None)
  Receive Date: 20090826
  Receipt Date: 20090813
  Transmission Date: 20100115
  Serious: Yes (Hospitalization)
  Sender: FDA-Public Use
  Company Number: FR-NOVOPROD-290893

PATIENT
  Age: 76 Year
  Sex: Male

DRUGS (16)
  1. NOVOMIX 30 FLEXPEN [Suspect]
     Indication: INSULIN-REQUIRING TYPE 2 DIABETES MELLITUS
     Route: 058
     Dates: start: 20090520
  2. OXEOL [Concomitant]
     Dosage: 10 MG, QD
     Route: 048
     Dates: end: 20090617
  3. NITRODERM [Concomitant]
     Dosage: 5 MG/24 H
     Route: 062
     Dates: end: 20090623
  4. KARDEGIC                           /00002703/ [Concomitant]
     Dosage: 160 MG, QD
     Route: 048
     Dates: start: 20030901, end: 20090623
  5. PLAVIX [Concomitant]
     Dosage: 75 MG, QD
     Route: 048
     Dates: start: 20090520, end: 20090621
  6. PLAVIX [Concomitant]
     Dosage: 75 MG, QD
     Route: 048
     Dates: start: 20090624
  7. INEXIUM                            /01479302/ [Concomitant]
     Dosage: 20 MG, QD
     Route: 048
     Dates: start: 20090520
  8. INEXIUM                            /01479302/ [Concomitant]
     Dosage: 40 MG, QD
     Route: 048
     Dates: start: 20090604, end: 20090624
  9. COVERSYL                           /00790701/ [Concomitant]
     Dosage: 2 MG, QD
     Route: 048
     Dates: start: 20090520, end: 20090620
  10. ALDACTONE [Concomitant]
     Dosage: 12.5 MG, QD
     Route: 048
     Dates: start: 20090520, end: 20090602
  11. LASILIX                            /00032601/ [Concomitant]
     Dosage: DOSE REGIMEN WAS PROGRESSIVELY REDUCED
     Route: 048
     Dates: start: 20090520, end: 20090617
  12. LASILIX                            /00032601/ [Concomitant]
     Dates: start: 20090621
  13. KREDEX [Concomitant]
     Dosage: 6.5 MG, QD
     Route: 048
     Dates: start: 20090520
  14. HUMALOG [Concomitant]
     Dosage: UNK, UNK
     Route: 058
     Dates: start: 20090520
  15. ARANESP [Concomitant]
     Indication: ANAEMIA
     Dosage: UNK, UNK
     Dates: start: 20090625
  16. TRIATEC                            /00116401/ [Concomitant]
     Dates: start: 20090620

REACTIONS (3)
  - ANAEMIA [None]
  - HYPOTENSION [None]
  - THROMBOCYTOPENIA [None]
